FAERS Safety Report 21054433 (Version 2)
Quarter: 2022Q3

REPORT INFORMATION
  Report Type: Spontaneous
  Country: CA (occurrence: CA)
  Receive Date: 20220707
  Receipt Date: 20220722
  Transmission Date: 20221027
  Serious: Yes (Death, Hospitalization)
  Sender: FDA-Public Use
  Company Number: CA-BAYER-2022A089832

PATIENT
  Age: 79 Year
  Sex: Female

DRUGS (24)
  1. CIPROFLOXACIN [Suspect]
     Active Substance: CIPROFLOXACIN
     Dosage: 500 MG, BID
     Route: 048
  2. BACTRIM DS [Suspect]
     Active Substance: SULFAMETHOXAZOLE\TRIMETHOPRIM
     Indication: Cystitis klebsiella
     Dosage: 1 DF, BID
     Route: 048
  3. MONUROL [Suspect]
     Active Substance: FOSFOMYCIN TROMETHAMINE
     Indication: Prophylaxis urinary tract infection
     Dosage: 3 G, Q3MON
     Route: 048
  4. PIPERACILLIN SODIUM\TAZOBACTAM SODIUM [Suspect]
     Active Substance: PIPERACILLIN SODIUM\TAZOBACTAM SODIUM
     Indication: Cystitis
     Dosage: 1 DF, QID
     Route: 042
  5. CLOTRIMAZOLE [Concomitant]
     Active Substance: CLOTRIMAZOLE
  6. ALLOPURINOL [Concomitant]
     Active Substance: ALLOPURINOL
  7. CALCIUM [Concomitant]
     Active Substance: CALCIUM
  8. CICLOPIROX OLAMINE [Concomitant]
     Active Substance: CICLOPIROX OLAMINE
  9. DILTIAZEM [Concomitant]
     Active Substance: DILTIAZEM
  10. IRBESARTAN [Concomitant]
     Active Substance: IRBESARTAN
     Route: 065
  11. HYDROCHLOROTHIAZIDE [Concomitant]
     Active Substance: HYDROCHLOROTHIAZIDE
  12. OXAZEPAM [Concomitant]
     Active Substance: OXAZEPAM
  13. FUROSEMIDE [Concomitant]
     Active Substance: FUROSEMIDE
  14. TRAZODONE [Concomitant]
     Active Substance: TRAZODONE HYDROCHLORIDE
  15. VITAMIN D NOS [Concomitant]
     Active Substance: VITAMIN D NOS
  16. ALBUTEROL\IPRATROPIUM [Concomitant]
     Active Substance: ALBUTEROL\IPRATROPIUM
  17. DICLOFENAC [Concomitant]
     Active Substance: DICLOFENAC
  18. BUDESONIDE\FORMOTEROL FUMARATE [Concomitant]
     Active Substance: BUDESONIDE\FORMOTEROL FUMARATE
  19. ENOXAPARIN [Concomitant]
     Active Substance: ENOXAPARIN
  20. ELIQUIS [Concomitant]
     Active Substance: APIXABAN
  21. ACETAMINOPHEN [Concomitant]
     Active Substance: ACETAMINOPHEN
  22. MOMETASONE FUROATE [Concomitant]
     Active Substance: MOMETASONE FUROATE
  23. PANTOPRAZOLE [Concomitant]
     Active Substance: PANTOPRAZOLE
  24. POLYETHYLENE GLYCOLS [Concomitant]
     Active Substance: POLYETHYLENE GLYCOLS

REACTIONS (4)
  - Clostridium difficile colitis [Fatal]
  - Septic shock [Fatal]
  - Respiratory distress [Fatal]
  - Cardiac failure [Fatal]
